FAERS Safety Report 7411861-6 (Version None)
Quarter: 2011Q2

REPORT INFORMATION
  Report Type: 
  Country: None (occurrence: None)
  Receive Date: 20110413
  Receipt Date: 20110405
  Transmission Date: 20111010
  Serious: Yes (Hospitalization)
  Sender: FDA-Public Use
  Company Number: FR-BAXTER-2011BH009475

PATIENT
  Age: 76 Year
  Sex: Male

DRUGS (3)
  1. GAMMAGARD S/D [Suspect]
     Indication: IMMUNODEFICIENCY COMMON VARIABLE
     Route: 042
     Dates: start: 20110302, end: 20110302
  2. GAMMAGARD S/D [Suspect]
     Route: 042
     Dates: start: 20110201, end: 20110201
  3. GAMMAGARD S/D [Suspect]
     Route: 042
     Dates: start: 20110215, end: 20110215

REACTIONS (3)
  - BRONCHOSPASM [None]
  - RESPIRATORY DISTRESS [None]
  - SHOCK [None]
